FAERS Safety Report 8213972-4 (Version None)
Quarter: 2012Q1

REPORT INFORMATION
  Report Type: 
  Country: None (occurrence: None)
  Receive Date: 20120316
  Receipt Date: 20120309
  Transmission Date: 20120608
  Serious: No
  Sender: FDA-Public Use
  Company Number: US-PFIZER INC-2012064675

PATIENT
  Sex: Male

DRUGS (1)
  1. FLECTOR [Suspect]
     Indication: MUSCULOSKELETAL PAIN
     Dosage: UNK

REACTIONS (1)
  - DRUG INEFFECTIVE [None]
